FAERS Safety Report 6634260-3 (Version None)
Quarter: 2010Q1

REPORT INFORMATION
  Report Type: 
  Country: None (occurrence: None)
  Receive Date: 20100315
  Receipt Date: 20100305
  Transmission Date: 20100710
  Serious: Yes (Hospitalization, Other)
  Sender: FDA-Public Use
  Company Number: PHEH2007US09001

PATIENT
  Sex: Female

DRUGS (61)
  1. ELIDEL [Suspect]
     Indication: ECZEMA
     Dosage: AS DIRECTED
     Route: 061
     Dates: start: 20041101
  2. PROZAC [Concomitant]
     Dosage: UNK
  3. PAXIL [Concomitant]
  4. NIFEREX (POLYSACCHARIDE-IRON COMPLEX) [Concomitant]
     Dosage: 150 MG / B.I.D.
  5. VITAMIN D [Concomitant]
     Dosage: 100 MG / DAILY
  6. MULTI-VITAMINS [Concomitant]
     Dosage: UNK, DAILY
  7. IBUPROFEN [Concomitant]
     Dosage: UNK, P.R.N.
  8. NEURONTIN [Concomitant]
     Dosage: UNK
  9. MAGIC MOUTHWASH [Concomitant]
     Indication: OROPHARYNGEAL PAIN
     Dosage: UNK
  10. ARANESP [Concomitant]
     Dosage: 200 MG
     Route: 058
  11. EMEND [Concomitant]
     Dosage: 125 MG
     Route: 048
  12. TYLENOL-500 [Concomitant]
     Dosage: 650 MG
     Route: 048
  13. BENADRYL ^ACHE^ [Concomitant]
     Dosage: 80 MG
     Route: 048
  14. DECADRON [Concomitant]
     Dosage: 12 MG
     Route: 048
  15. ZOFRAN [Concomitant]
     Dosage: 16 MG
     Route: 048
  16. DACARBAZINE [Concomitant]
     Dosage: 600 MG
  17. BLEOMYCIN [Concomitant]
     Dosage: UNK
  18. VINBLASTINE [Concomitant]
     Dosage: 10 MG
  19. ADRIAMYCIN PFS [Concomitant]
  20. PNEUMOVAX 23 [Concomitant]
     Dosage: 0.5 ML
  21. NEULASTA [Concomitant]
     Dosage: 6 MG
     Route: 058
  22. ATIVAN [Concomitant]
     Dosage: 1 MG
  23. DEMEROL [Concomitant]
     Dosage: 50 MG
  24. ALLOPURINOL [Concomitant]
     Dosage: 300 MG / DAILY
  25. LACTULOSE [Concomitant]
     Dosage: 4 TSP / 4 X DAILY
  26. MICRO-K [Concomitant]
     Dosage: 10 MG / 2 X DAILY
     Route: 048
  27. HYCODAN                                 /USA/ [Concomitant]
     Dosage: 5 ML / EVERY 4 TO 6 HRS
  28. LOTRIMIN [Concomitant]
     Dosage: UNK, P.R.N.
  29. CIPROFLOXACIN HYDROCHLORIDE [Concomitant]
     Dosage: 500 MG
  30. FLUCONAZOLE [Concomitant]
     Dosage: 150 MG
  31. CUTIVATE [Concomitant]
     Dosage: 0.05%
  32. DIPROLENE [Concomitant]
     Dosage: 0.05%
  33. SULFAMETHOXAZOLE [Concomitant]
     Dosage: UNK
  34. PHENAZOPYRIDINE [Concomitant]
     Dosage: 200 MG
  35. LAC-HYDRIN [Concomitant]
     Dosage: 12%
  36. ELOCON [Concomitant]
     Dosage: 0.1%
  37. HYDROCORTISONE [Concomitant]
     Dosage: 2.5%
  38. HYDROXYZINE [Concomitant]
     Dosage: 10 MG
  39. CELEXA [Concomitant]
     Dosage: 20 MG
  40. AMOXICILLIN [Concomitant]
     Dosage: 500 MG
  41. POLYMYXIN [Concomitant]
     Dosage: UNK
  42. BACTROBAN                               /NET/ [Concomitant]
     Dosage: UNK
  43. PROPOXYPHENE NAPSYLATE [Concomitant]
     Dosage: UNK
  44. BENZONATATE [Concomitant]
     Dosage: 200 MG
  45. SINGULAIR [Concomitant]
     Dosage: 10 MG
  46. FERREX [Concomitant]
     Dosage: UNK
  47. OXYCODONE HCL AND ACETAMINOPHEN [Concomitant]
     Dosage: UNK
  48. PROCHLORPERAZINE [Concomitant]
     Dosage: 10 MG
  49. DEXAMETHASONE [Concomitant]
     Dosage: UNK
  50. NYSTATIN [Concomitant]
     Dosage: UNK
  51. TETRACYCLINE [Concomitant]
     Dosage: UNK
  52. DIPHENHIST [Concomitant]
     Dosage: UNK
  53. AVELOX [Concomitant]
     Dosage: 400 MG
  54. ALBUTEROL [Concomitant]
     Dosage: 90 MCG
  55. METHYLPREDNISOLONE [Concomitant]
     Dosage: 4 MG
  56. PREDNISONE [Concomitant]
     Dosage: 20 MG
  57. PRAMOX HC [Concomitant]
     Dosage: UNK
  58. ATARAX [Concomitant]
     Dosage: UNK
  59. BUSPAR [Concomitant]
     Dosage: UNK
  60. WELLBUTRIN [Concomitant]
  61. GEMCITABINE [Concomitant]
     Dosage: UNK
     Dates: start: 20050722

REACTIONS (20)
  - ADNEXA UTERI MASS [None]
  - ARTHRALGIA [None]
  - CHEST DISCOMFORT [None]
  - DERMATITIS [None]
  - DYSPNOEA [None]
  - ECZEMA [None]
  - HEPATIC STEATOSIS [None]
  - HODGKIN'S DISEASE [None]
  - IMPETIGO [None]
  - KERATOCONJUNCTIVITIS SICCA [None]
  - LACRIMATION INCREASED [None]
  - LUNG DISORDER [None]
  - LYMPHADENOPATHY [None]
  - NEUROPATHY PERIPHERAL [None]
  - ORAL HERPES [None]
  - PALPITATIONS [None]
  - PNEUMOTHORAX [None]
  - SARCOIDOSIS [None]
  - SYNOVIAL CYST [None]
  - TACHYCARDIA [None]
